FAERS Safety Report 24453289 (Version 2)
Quarter: 2024Q4

REPORT INFORMATION
  Report Type: Report from Study
  Country: US (occurrence: US)
  Receive Date: 20241017
  Receipt Date: 20241018
  Transmission Date: 20250115
  Serious: No
  Sender: ROCHE
  Company Number: US-ROCHE-3081001

PATIENT
  Sex: Female

DRUGS (2)
  1. RITUXAN [Suspect]
     Active Substance: RITUXIMAB
     Indication: Autoimmune hepatitis
     Dosage: 1000 MG ON DAY 1 AND DAY 15 DAYS FOLLOWED BY EVERY 6 MONTHS?DATE OF SERVICE REPORTED ON 19/APR/2022
     Route: 065
  2. RITUXAN [Suspect]
     Active Substance: RITUXIMAB
     Indication: Osteoarthritis

REACTIONS (2)
  - Off label use [Unknown]
  - No adverse event [Unknown]
